FAERS Safety Report 7949259-4 (Version None)
Quarter: 2011Q4

REPORT INFORMATION
  Report Type: 
  Country: None (occurrence: None)
  Receive Date: 20111129
  Receipt Date: 20111129
  Transmission Date: 20120403
  Serious: Yes (Hospitalization)
  Sender: FDA-Public Use
  Company Number: None

PATIENT
  Sex: Female
  Weight: 16.75 kg

DRUGS (1)
  1. DACTINOMYCIN [Suspect]
     Dosage: .75 MG

REACTIONS (18)
  - BLOOD MAGNESIUM ABNORMAL [None]
  - BLOOD POTASSIUM ABNORMAL [None]
  - ABDOMINAL TENDERNESS [None]
  - LIVER FUNCTION TEST ABNORMAL [None]
  - PYREXIA [None]
  - ABDOMINAL PAIN [None]
  - DYSURIA [None]
  - CONFUSIONAL STATE [None]
  - COAGULOPATHY [None]
  - DYSPNOEA [None]
  - LETHARGY [None]
  - PLATELET COUNT DECREASED [None]
  - VENOOCCLUSIVE DISEASE [None]
  - ASCITES [None]
  - HEPATOMEGALY [None]
  - BLOOD PHOSPHORUS ABNORMAL [None]
  - VOMITING [None]
  - ANAEMIA [None]
